FAERS Safety Report 23042043 (Version 1)
Quarter: 2023Q4

REPORT INFORMATION
  Report Type: Spontaneous
  Country: US (occurrence: US)
  Receive Date: 20231008
  Receipt Date: 20231008
  Transmission Date: 20240110
  Serious: Yes (Death, Hospitalization, Other)
  Sender: FDA-Public Use
  Company Number: US-MYLANLABS-2012040152

PATIENT
  Age: 51 Year
  Sex: Female

DRUGS (2)
  1. CARISOPRODOL [Suspect]
     Active Substance: CARISOPRODOL
     Indication: Product used for unknown indication
     Dosage: UNK
     Route: 065
  2. CLONAZEPAM [Suspect]
     Active Substance: CLONAZEPAM
     Indication: Product used for unknown indication
     Dosage: UNK
     Route: 065

REACTIONS (21)
  - Intentional overdose [Fatal]
  - Urinary bladder haemorrhage [Fatal]
  - Urinary bladder rupture [Fatal]
  - Pneumonitis aspiration [Fatal]
  - Pelvic haemorrhage [Fatal]
  - Soft tissue haemorrhage [Fatal]
  - Toxicity to various agents [Fatal]
  - Pneumonia [Unknown]
  - Hepatic fibrosis [Unknown]
  - Unresponsive to stimuli [Unknown]
  - Pulmonary oedema [Unknown]
  - Pulmonary congestion [Unknown]
  - Pneumonitis [Unknown]
  - Hepatomegaly [Unknown]
  - Mydriasis [Unknown]
  - Gastric bypass [Unknown]
  - Pain [Unknown]
  - Hyperhidrosis [Unknown]
  - Heart rate decreased [Unknown]
  - Tachypnoea [Unknown]
  - General physical health deterioration [Unknown]

NARRATIVE: CASE EVENT DATE: 20100801
